FAERS Safety Report 5331130-8 (Version None)
Quarter: 2007Q2

REPORT INFORMATION
  Report Type: 
  Country: None (occurrence: None)
  Receive Date: 20070522
  Receipt Date: 20070515
  Transmission Date: 20071010
  Serious: Yes (Death)
  Sender: FDA-Public Use
  Company Number: GB-AVENTIS-200713655GDDC

PATIENT
  Age: 68 Year
  Sex: Female
  Weight: 74 kg

DRUGS (8)
  1. TAXOTERE [Suspect]
     Route: 041
     Dates: start: 20070411, end: 20070411
  2. FLUOROURACIL [Concomitant]
  3. EPIRUBICIN [Concomitant]
  4. CYCLOPHOSPHAMIDE [Concomitant]
  5. ANTIEMETICS AND ANTINAUSEANTS [Concomitant]
  6. OTHER ANTIDIARRHOEALS [Concomitant]
  7. DEXAMETHASONE 0.5MG TAB [Concomitant]
     Route: 048
     Dates: start: 20070410, end: 20070412
  8. METOCLOPRAMIDE [Concomitant]

REACTIONS (5)
  - CARDIAC ARREST [None]
  - DIARRHOEA [None]
  - GASTROINTESTINAL DISORDER [None]
  - HYPOTENSION [None]
  - HYPOVOLAEMIC SHOCK [None]
